FAERS Safety Report 15475405 (Version 2)
Quarter: 2018Q4

REPORT INFORMATION
  Report Type: Spontaneous
  Country: DE (occurrence: DE)
  Receive Date: 20181008
  Receipt Date: 20181115
  Transmission Date: 20190205
  Serious: Yes (Life-Threatening, Other)
  Sender: FDA-Public Use
  Company Number: DE-OTSUKA-2018_032378

PATIENT
  Age: 47 Year
  Sex: Female
  Weight: 52 kg

DRUGS (2)
  1. JINARC [Suspect]
     Active Substance: TOLVAPTAN
     Dosage: 15 MG, QD (IN EVENING)
     Route: 048
     Dates: start: 201706, end: 201804
  2. JINARC [Suspect]
     Active Substance: TOLVAPTAN
     Indication: CONGENITAL CYSTIC KIDNEY DISEASE
     Dosage: 45 MG, QD (IN MRNING)
     Route: 048
     Dates: start: 201706, end: 201804

REACTIONS (3)
  - Glioblastoma [Unknown]
  - Gastroenteritis [Unknown]
  - Infected cyst [Unknown]

NARRATIVE: CASE EVENT DATE: 201809
